FAERS Safety Report 6309155-5 (Version None)
Quarter: 2009Q3

REPORT INFORMATION
  Report Type: 
  Country: None (occurrence: None)
  Receive Date: 20090814
  Receipt Date: 20090511
  Transmission Date: 20100115
  Serious: No
  Sender: FDA-Public Use
  Company Number: A0783510A

PATIENT
  Age: 80 Year
  Sex: Male

DRUGS (3)
  1. COREG CR [Suspect]
     Dosage: 80MG PER DAY
     Route: 048
     Dates: start: 20080101
  2. ATENOLOL [Concomitant]
  3. PRAVACHOL [Concomitant]

REACTIONS (5)
  - BACK PAIN [None]
  - DIZZINESS [None]
  - HEART RATE DECREASED [None]
  - HYPOTENSION [None]
  - OEDEMA PERIPHERAL [None]
